FAERS Safety Report 9016181 (Version 1)
Quarter: 2013Q1

REPORT INFORMATION
  Report Type: Spontaneous
  Country: IT (occurrence: IT)
  Receive Date: 20130116
  Receipt Date: 20130116
  Transmission Date: 20140127
  Serious: Yes (Hospitalization)
  Sender: FDA-Public Use
  Company Number: PHHY2013IT003144

PATIENT
  Age: 11 Year
  Sex: Male

DRUGS (2)
  1. KETOPROFEN [Suspect]
     Indication: INFECTION
     Dosage: 1200 MG TOTAL DOSE
     Route: 048
     Dates: start: 20121231, end: 20130101
  2. PARACETAMOL [Suspect]
     Indication: OROPHARYNGEAL PAIN
     Dosage: 250 MG, UNK
     Route: 048
     Dates: start: 20130101, end: 20130104

REACTIONS (2)
  - Gastric ulcer [Recovering/Resolving]
  - Melaena [Recovering/Resolving]
